FAERS Safety Report 25041178 (Version 1)
Quarter: 2025Q1

REPORT INFORMATION
  Report Type: Spontaneous
  Country: US (occurrence: US)
  Receive Date: 20250305
  Receipt Date: 20250305
  Transmission Date: 20250408
  Serious: Yes (Other)
  Sender: RANBAXY
  Company Number: US-SUN PHARMACEUTICAL INDUSTRIES LTD-2025R1-496882

PATIENT
  Age: 44 Year
  Sex: Female

DRUGS (2)
  1. CARIPRAZINE [Suspect]
     Active Substance: CARIPRAZINE
     Indication: Bipolar disorder
     Route: 065
  2. AFRIN [Suspect]
     Active Substance: OXYMETAZOLINE HYDROCHLORIDE
     Indication: Bipolar disorder
     Route: 045

REACTIONS (2)
  - Drug use disorder [Unknown]
  - Therapeutic response decreased [Unknown]
